FAERS Safety Report 9115901 (Version 2)
Quarter: 2013Q1

REPORT INFORMATION
  Report Type: Spontaneous
  Country: US (occurrence: US)
  Receive Date: 20130225
  Receipt Date: 20130304
  Transmission Date: 20140127
  Serious: Yes (Hospitalization)
  Sender: FDA-Public Use
  Company Number: US-DX529-2013DX000036

PATIENT
  Age: 16 Year
  Sex: Female
  Weight: 44.45 kg

DRUGS (12)
  1. KALBITOR [Suspect]
     Indication: HEREDITARY ANGIOEDEMA
     Route: 058
     Dates: start: 20130209, end: 20130209
  2. KALBITOR [Suspect]
     Indication: ABDOMINAL PAIN
     Route: 058
     Dates: start: 20130209, end: 20130209
  3. KALBITOR [Suspect]
     Indication: HEREDITARY ANGIOEDEMA
     Route: 058
     Dates: start: 201212, end: 201212
  4. KALBITOR [Suspect]
     Indication: ABDOMINAL PAIN
     Route: 058
     Dates: start: 201212, end: 201212
  5. KALBITOR [Suspect]
     Indication: HEREDITARY ANGIOEDEMA
     Route: 058
     Dates: start: 201211, end: 201211
  6. KALBITOR [Suspect]
     Indication: ABDOMINAL PAIN
     Route: 058
     Dates: start: 201211, end: 201211
  7. TRAMADOL [Concomitant]
     Indication: PRODUCT USED FOR UNKNOWN INDICATION
  8. ALBUTEROL /00139501/ [Concomitant]
     Indication: ASTHMA
  9. DIPHENHYDRAMINE HCL [Concomitant]
     Indication: PRODUCT USED FOR UNKNOWN INDICATION
  10. CYCLOSPORINE [Concomitant]
     Indication: PRODUCT USED FOR UNKNOWN INDICATION
  11. LUPRON DEPOT [Concomitant]
     Indication: PRODUCT USED FOR UNKNOWN INDICATION
     Route: 030
  12. EPIPEN [Concomitant]
     Indication: PRODUCT USED FOR UNKNOWN INDICATION

REACTIONS (6)
  - Abdominal pain [Unknown]
  - Endometriosis [Unknown]
  - Anaemia [Unknown]
  - Thyroid disorder [Unknown]
  - Drug ineffective for unapproved indication [Unknown]
  - Off label use [Unknown]
